FAERS Safety Report 14923562 (Version 1)
Quarter: 2018Q2

REPORT INFORMATION
  Report Type: Spontaneous
  Country: US (occurrence: US)
  Receive Date: 20180522
  Receipt Date: 20180522
  Transmission Date: 20180711
  Serious: No
  Sender: FDA-Public Use
  Company Number: US-PERRIGO-18US003627

PATIENT
  Age: 78 Year
  Sex: Female
  Weight: 72.56 kg

DRUGS (9)
  1. DOXYCYCLINE. [Concomitant]
     Active Substance: DOXYCYCLINE
     Indication: PEMPHIGOID
     Dosage: UNK
     Route: 065
     Dates: start: 1998
  2. METRONIDAZOLE. [Concomitant]
     Active Substance: METRONIDAZOLE
     Indication: ROSACEA
     Dosage: UNK
     Route: 065
     Dates: start: 2013
  3. MOMETASONE FUROATE. [Suspect]
     Active Substance: MOMETASONE FUROATE
     Indication: PSORIASIS
     Dosage: 4 DROPS, SINGLE
     Route: 047
     Dates: start: 20180330, end: 20180330
  4. TRIAMCINOLONE [Concomitant]
     Active Substance: TRIAMCINOLONE
     Indication: WOUND
     Dosage: UNK
     Route: 065
     Dates: end: 2018
  5. NEXIUM [Concomitant]
     Active Substance: ESOMEPRAZOLE MAGNESIUM
     Indication: GASTROINTESTINAL DISORDER
     Dosage: UNK
     Route: 065
     Dates: start: 1998
  6. MOMETASONE FUROATE. [Suspect]
     Active Substance: MOMETASONE FUROATE
     Indication: ACCIDENTAL EXPOSURE TO PRODUCT
     Dosage: 2 DROPS, QD IN AFTERNOON
     Route: 061
     Dates: start: 2017
  7. BETAMETHASONE. [Concomitant]
     Active Substance: BETAMETHASONE
     Indication: WOUND
     Dosage: UNK
     Route: 065
     Dates: start: 2018
  8. MOMETASONE FUROATE. [Suspect]
     Active Substance: MOMETASONE FUROATE
     Indication: PEMPHIGOID
  9. METOPROLOL. [Concomitant]
     Active Substance: METOPROLOL
     Indication: HYPERTENSION
     Dosage: UNK
     Route: 065
     Dates: start: 1998

REACTIONS (4)
  - Accidental exposure to product [Recovered/Resolved]
  - Eye irritation [Recovered/Resolved]
  - Drug ineffective [Unknown]
  - Ocular hyperaemia [Recovered/Resolved]

NARRATIVE: CASE EVENT DATE: 2017
